FAERS Safety Report 7130579-0 (Version None)
Quarter: 2010Q4

REPORT INFORMATION
  Report Type: 
  Country: None (occurrence: None)
  Receive Date: 20101029
  Receipt Date: 20100520
  Transmission Date: 20110411
  Serious: No
  Sender: FDA-Public Use
  Company Number: US-002113

PATIENT
  Sex: Male

DRUGS (5)
  1. DEGARELIX  80 MG [Suspect]
     Indication: PROSTATE CANCER
     Dosage: (80 MG TOTAL  SUBCUTANEOUS)
     Route: 058
     Dates: start: 20100430
  2. FLUTICASONE PROPIONATE [Concomitant]
  3. VITAMIN B-12 [Concomitant]
  4. CALCIUM [Concomitant]
  5. LANTUS [Concomitant]

REACTIONS (3)
  - INJECTION SITE ERYTHEMA [None]
  - INJECTION SITE SWELLING [None]
  - INJECTION SITE WARMTH [None]
